FAERS Safety Report 5464048-0 (Version None)
Quarter: 2007Q3

REPORT INFORMATION
  Report Type: 
  Country: None (occurrence: None)
  Receive Date: 20070921
  Receipt Date: 20070914
  Transmission Date: 20080115
  Serious: Yes (Life-Threatening, Hospitalization, Other)
  Sender: FDA-Public Use
  Company Number: US-BAYER-200613282BWH

PATIENT
  Age: 38 Year
  Sex: Female
  Weight: 95 kg

DRUGS (6)
  1. CIPRO XR 500MG TABLETS [Suspect]
     Indication: URINARY TRACT INFECTION
     Route: 048
     Dates: start: 20030701, end: 20030701
  2. ADVIL [Concomitant]
     Indication: OSTEOARTHRITIS
  3. ALLEGRA [Concomitant]
     Dates: start: 20030504
  4. PATANOL [Concomitant]
     Dates: start: 20030514
  5. HYDROCODONE/ APAP 7.5/500MG [Concomitant]
     Route: 048
  6. ENDOCET 7.5/500MG [Concomitant]
     Route: 048

REACTIONS (10)
  - BRAIN OEDEMA [None]
  - COMA [None]
  - HAEMATEMESIS [None]
  - HYPERTHERMIA [None]
  - HYPOKALAEMIA [None]
  - LIGAMENT RUPTURE [None]
  - MUSCULAR WEAKNESS [None]
  - PYREXIA [None]
  - RESPIRATORY FAILURE [None]
  - THROMBOCYTOPENIA [None]
